FAERS Safety Report 11791928 (Version 2)
Quarter: 2016Q1

REPORT INFORMATION
  Report Type: Spontaneous
  Country: US (occurrence: US)
  Receive Date: 20151201
  Receipt Date: 20160120
  Transmission Date: 20160525
  Serious: Yes (Hospitalization)
  Sender: FDA-Public Use
  Company Number: US-AKRIMAX-IDR-2015-0048

PATIENT
  Sex: Female
  Weight: 60.38 kg

DRUGS (2)
  1. CARDIZEM [Concomitant]
     Active Substance: DILTIAZEM HYDROCHLORIDE
     Indication: HYPERTENSION
     Dosage: 30MG X3 DAILY
     Dates: start: 1998
  2. INDERAL LA [Suspect]
     Active Substance: PROPRANOLOL HYDROCHLORIDE
     Indication: ATRIAL FIBRILLATION
     Dosage: ONE 80MG CAPSULE DAILY
     Route: 048
     Dates: start: 1970

REACTIONS (7)
  - Oophorectomy [Unknown]
  - Fatigue [Unknown]
  - Diarrhoea [Unknown]
  - Fatigue [Unknown]
  - Insomnia [Unknown]
  - Gallbladder operation [Unknown]
  - Asthenia [Unknown]

NARRATIVE: CASE EVENT DATE: 2000
